FAERS Safety Report 9349231 (Version 1)
Quarter: 2013Q2

REPORT INFORMATION
  Report Type: Spontaneous
  Country: DE (occurrence: DE)
  Receive Date: 20130614
  Receipt Date: 20130614
  Transmission Date: 20140414
  Serious: Yes (Life-Threatening, Hospitalization, Congenital Anomaly)
  Sender: FDA-Public Use
  Company Number: DE-TEVA-410119GER

PATIENT
  Age: 0 Year
  Sex: Male
  Weight: 1.93 kg

DRUGS (2)
  1. MCP-TROPFEN [Suspect]
     Route: 064
  2. LOPERAMIDE [Suspect]
     Route: 064

REACTIONS (2)
  - Urethral valves [Recovered/Resolved with Sequelae]
  - Maternal drugs affecting foetus [None]
